FAERS Safety Report 11745507 (Version 1)
Quarter: 2015Q4

REPORT INFORMATION
  Report Type: Spontaneous
  Country: US (occurrence: None)
  Receive Date: 20151116
  Receipt Date: 20151116
  Transmission Date: 20160304
  Serious: No
  Sender: FDA-Public Use
  Company Number: None

PATIENT
  Age: 60 Year
  Sex: Female

DRUGS (1)
  1. HUMIRA [Suspect]
     Active Substance: ADALIMUMAB
     Indication: RHEUMATOID ARTHRITIS
     Route: 058
     Dates: start: 20150706

REACTIONS (5)
  - Sinusitis [None]
  - Swelling face [None]
  - Pain [None]
  - Peripheral swelling [None]
  - Muscle tightness [None]

NARRATIVE: CASE EVENT DATE: 20151019
